FAERS Safety Report 12065487 (Version 1)
Quarter: 2016Q1

REPORT INFORMATION
  Report Type: Spontaneous
  Country: US (occurrence: US)
  Receive Date: 20160210
  Receipt Date: 20160210
  Transmission Date: 20160526
  Serious: No
  Sender: FDA-Public Use
  Company Number: US-ALLERGAN-1510796US

PATIENT
  Age: 58 Year
  Sex: Female
  Weight: 58.96 kg

DRUGS (2)
  1. BOTOX COSMETIC [Suspect]
     Active Substance: ONABOTULINUMTOXINA
     Indication: SKIN WRINKLING
     Dosage: 24 UNITS, SINGLE
     Route: 030
     Dates: start: 20150521, end: 20150521
  2. BOTOX COSMETIC [Suspect]
     Active Substance: ONABOTULINUMTOXINA
     Indication: SKIN WRINKLING
     Dosage: 20 UNITS, SINGLE
     Route: 030
     Dates: start: 20150521, end: 20150521

REACTIONS (7)
  - Hypersomnia [Unknown]
  - Lacrimation increased [Recovered/Resolved]
  - Injection site swelling [Recovered/Resolved]
  - Lagophthalmos [Recovered/Resolved]
  - Facial paresis [Recovered/Resolved]
  - Wrong technique in product usage process [Unknown]
  - Injection site bruising [Recovered/Resolved]

NARRATIVE: CASE EVENT DATE: 20150521
